FAERS Safety Report 7224740-4 (Version None)
Quarter: 2011Q1

REPORT INFORMATION
  Report Type: 
  Country: None (occurrence: None)
  Receive Date: 20110104
  Receipt Date: 20101223
  Transmission Date: 20110831
  Serious: Yes (Death)
  Sender: FDA-Public Use
  Company Number: MPS1-1000425

PATIENT
  Age: 5 Year
  Sex: Male
  Weight: 16 kg

DRUGS (1)
  1. ALDURAZYME [Suspect]
     Indication: MUCOPOLYSACCHARIDOSIS I
     Dosage: 1500 U, QW, INTRAVENOUS
     Route: 042
     Dates: start: 20080308, end: 20101206

REACTIONS (1)
  - UPPER AIRWAY OBSTRUCTION [None]
